FAERS Safety Report 6749783-6 (Version None)
Quarter: 2010Q2

REPORT INFORMATION
  Report Type: 
  Country: None (occurrence: None)
  Receive Date: 20100601
  Receipt Date: 20100524
  Transmission Date: 20101027
  Serious: Yes (Other)
  Sender: FDA-Public Use
  Company Number: ES-SP-2010-01262

PATIENT
  Age: 67 Year
  Sex: Male

DRUGS (1)
  1. IMMUCYST [Suspect]
     Indication: BLADDER TRANSITIONAL CELL CARCINOMA
     Dosage: 27 MG WEEKLY
     Route: 043
     Dates: start: 20041001

REACTIONS (16)
  - BLADDER DISORDER [None]
  - CONTRACTED BLADDER [None]
  - CYSTITIS [None]
  - DYSURIA [None]
  - HAEMATURIA [None]
  - HYDRONEPHROSIS [None]
  - HYPERTENSION [None]
  - INCORRECT DOSE ADMINISTERED [None]
  - MYCOBACTERIAL INFECTION [None]
  - POLLAKIURIA [None]
  - PYURIA [None]
  - REDUCED BLADDER CAPACITY [None]
  - RENAL FAILURE [None]
  - TUBERCULOSIS BLADDER [None]
  - URINARY TRACT INFECTION [None]
  - VESICOURETERIC REFLUX [None]
